FAERS Safety Report 14915225 (Version 2)
Quarter: 2018Q4

REPORT INFORMATION
  Report Type: Spontaneous
  Country: JP (occurrence: JP)
  Receive Date: 20180518
  Receipt Date: 20181030
  Transmission Date: 20190204
  Serious: No
  Sender: FDA-Public Use
  Company Number: JP-PFIZER INC-2018126225

PATIENT
  Age: 92 Year
  Sex: Male

DRUGS (15)
  1. DILTIAZEM. [Concomitant]
     Active Substance: DILTIAZEM
     Dosage: 100 MG, AS NEEDED
  2. PRAVASTATIN. [Concomitant]
     Active Substance: PRAVASTATIN
     Dosage: 10 MG, 1X/DAY
  3. MAGMITT [Concomitant]
     Active Substance: MAGNESIUM OXIDE
     Dosage: 500 MG, 3X/DAY
  4. MOSAPRIDE [Concomitant]
     Active Substance: MOSAPRIDE
     Dosage: 5 MG, 3X/DAY
  5. WYPAX [Suspect]
     Active Substance: LORAZEPAM
     Dosage: 1 DF, 1X/DAY
     Route: 048
  6. NITROPEN [Concomitant]
     Active Substance: NITROGLYCERIN
     Dosage: 1 DF, AS NEEDED
  7. URIEF [Concomitant]
     Active Substance: SILODOSIN
     Dosage: 4 MG, 1X/DAY
  8. BIO-THREE [Concomitant]
     Active Substance: HERBALS
     Dosage: 2 DF, 3X/DAY
  9. ACETAMINOPHEN. [Concomitant]
     Active Substance: ACETAMINOPHEN
     Dosage: 2 DF, AS NEEDED
  10. BAYASPIRIN [Concomitant]
     Active Substance: ASPIRIN
     Dosage: 1 DF, 1X/DAY
  11. ALOSENN [Concomitant]
     Active Substance: SENNA LEAF
     Dosage: 1 DF, AS NEEDED
  12. PRIMPERAN [Concomitant]
     Active Substance: METOCLOPRAMIDE HYDROCHLORIDE
     Dosage: 1 DF, AS NEEDED
  13. TAKECAB [Concomitant]
     Active Substance: VONOPRAZAN FUMURATE
     Dosage: 10 MG, 1X/DAY
  14. EXCELASE [Concomitant]
     Active Substance: PANCRELIPASE
     Dosage: 1 DF, 3X/DAY
  15. DAIKENCHUTO [Concomitant]
     Active Substance: HERBALS
     Dosage: 1 DF, 3X/DAY

REACTIONS (2)
  - Hallucination, visual [Recovering/Resolving]
  - Hallucination, auditory [Recovering/Resolving]

NARRATIVE: CASE EVENT DATE: 201802
